FAERS Safety Report 20729857 (Version 1)
Quarter: 2022Q2

REPORT INFORMATION
  Report Type: Spontaneous
  Country: US (occurrence: None)
  Receive Date: 20220419
  Receipt Date: 20220419
  Transmission Date: 20220721
  Serious: Yes (Other)
  Sender: FDA-Public Use
  Company Number: None

PATIENT
  Age: 69 Year
  Sex: Female
  Weight: 78.02 kg

DRUGS (18)
  1. TEMOZOLOMIDE [Suspect]
     Active Substance: TEMOZOLOMIDE
     Indication: Brain neoplasm malignant
     Dosage: OTHER FREQUENCY : DAYS1-5;?
     Route: 048
  2. ZOFRAN [Concomitant]
  3. COMPAZINE [Concomitant]
     Active Substance: PROCHLORPERAZINE MALEATE
  4. BACTRIM [Concomitant]
     Active Substance: SULFAMETHOXAZOLE\TRIMETHOPRIM
  5. SYNTHROID [Concomitant]
  6. ASPIRIN [Concomitant]
     Active Substance: ASPIRIN
  7. CLOBAZAM [Concomitant]
     Active Substance: CLOBAZAM
  8. DECADRON [Concomitant]
     Active Substance: DEXAMETHASONE
  9. LEXAPRO [Concomitant]
     Active Substance: ESCITALOPRAM OXALATE
  10. KEPPRA [Concomitant]
     Active Substance: LEVETIRACETAM
  11. CLARITIN [Concomitant]
     Active Substance: LORATADINE
  12. RITALIN [Concomitant]
     Active Substance: METHYLPHENIDATE HYDROCHLORIDE
  13. LOPRESSOR [Concomitant]
     Active Substance: METOPROLOL TARTRATE
  14. MIRTAZAPINE [Concomitant]
     Active Substance: MIRTAZAPINE
  15. VITAMINS [Concomitant]
     Active Substance: VITAMINS
  16. AFRIN [Concomitant]
     Active Substance: OXYMETAZOLINE
  17. ROSUVASTATIN [Concomitant]
     Active Substance: ROSUVASTATIN
  18. VALSARTAN [Concomitant]
     Active Substance: VALSARTAN

REACTIONS (1)
  - Cardiac disorder [None]
